FAERS Safety Report 26180421 (Version 1)
Quarter: 2025Q4

REPORT INFORMATION
  Report Type: Spontaneous
  Country: EU (occurrence: None)
  Receive Date: 20251219
  Receipt Date: 20251219
  Transmission Date: 20260118
  Serious: Yes (Hospitalization)
  Sender: ORGANON
  Company Number: None

PATIENT
  Age: 72 Year
  Sex: Female
  Weight: 71 kg

DRUGS (3)
  1. MIRTAZAPINE [Suspect]
     Active Substance: MIRTAZAPINE
     Indication: Depression
     Dosage: 15 MILLIGRAM, QD
     Route: 061
     Dates: start: 20250725, end: 20251124
  2. ARSENIC [Suspect]
     Active Substance: ARSENIC
     Indication: Acute myeloid leukaemia
     Dosage: J1-5, 8-12, 15-19, 22-26
     Dates: start: 20250922
  3. VESANOID [Suspect]
     Active Substance: TRETINOIN
     Indication: Acute myeloid leukaemia
     Dosage: PDT 2 WEEKS
     Route: 061
     Dates: start: 20250922

REACTIONS (2)
  - Neuralgia [Recovering/Resolving]
  - Paraesthesia oral [Recovering/Resolving]

NARRATIVE: CASE EVENT DATE: 20251010
